FAERS Safety Report 10153191 (Version 1)
Quarter: 2014Q2

REPORT INFORMATION
  Report Type: Not Available
  Country: IL (occurrence: IL)
  Receive Date: 20140505
  Receipt Date: 20140505
  Transmission Date: 20141212
  Serious: Yes (Hospitalization)
  Sender: FDA-Public Use
  Company Number: IL-ONYX-2014-0930

PATIENT
  Sex: Male

DRUGS (3)
  1. KYPROLIS [Suspect]
     Indication: PLASMA CELL MYELOMA
     Route: 042
     Dates: start: 201402, end: 201404
  2. DEXAMETHASONE [Concomitant]
     Indication: PLASMA CELL MYELOMA
  3. POMALIDOMIDE [Concomitant]
     Indication: PLASMA CELL MYELOMA

REACTIONS (2)
  - Atrial fibrillation [Recovered/Resolved]
  - Cardiac failure congestive [Recovered/Resolved]
